FAERS Safety Report 5230065-9 (Version None)
Quarter: 2007Q1

REPORT INFORMATION
  Report Type: 
  Country: None (occurrence: None)
  Receive Date: 20070206
  Receipt Date: 20061113
  Transmission Date: 20070707
  Serious: No
  Sender: FDA-Public Use
  Company Number: US-GLAXOSMITHKLINE-A0623558A

PATIENT
  Age: 69 Year
  Sex: Female
  Weight: 60.9 kg

DRUGS (3)
  1. PAROXETINE HCL [Suspect]
     Dosage: 20MG PER DAY
     Route: 048
     Dates: start: 20051001, end: 20060401
  2. ACTONEL [Concomitant]
  3. NORVASC [Concomitant]

REACTIONS (1)
  - NIGHTMARE [None]
